FAERS Safety Report 8738527 (Version 2)
Quarter: 2012Q4

REPORT INFORMATION
  Report Type: Report from Study
  Country: DE (occurrence: DE)
  Receive Date: 20120823
  Receipt Date: 20120904
  Transmission Date: 20130627
  Serious: Yes (Other)
  Sender: FDA-Public Use
  Company Number: DE-PFIZER INC-2012203378

PATIENT
  Age: 46 Year
  Sex: Male

DRUGS (2)
  1. IBUPROFEN [Suspect]
     Indication: MIGRAINE
     Dosage: Twice a week
  2. PELARGONIUM SIDOIDES [Concomitant]
     Indication: VIRAL INFECTION
     Dosage: UNK
     Dates: start: 200512

REACTIONS (1)
  - Liver injury [Unknown]
